FAERS Safety Report 25039196 (Version 5)
Quarter: 2025Q4

REPORT INFORMATION
  Report Type: Report from Study
  Country: US (occurrence: None)
  Receive Date: 20250305
  Receipt Date: 20251014
  Transmission Date: 20260119
  Serious: Yes (Other)
  Sender: UCB
  Company Number: US-UCBSA-2025005998

PATIENT
  Age: 26 Year
  Weight: 61.224 kg

DRUGS (4)
  1. FENFLURAMINE [Suspect]
     Active Substance: FENFLURAMINE
     Indication: Severe myoclonic epilepsy of infancy
     Dosage: 4 MILLILITER, 2X/DAY (BID)
  2. FENFLURAMINE [Suspect]
     Active Substance: FENFLURAMINE
     Dosage: 4.4 MILLIGRAM, ONCE DAILY (QD)
  3. FENFLURAMINE [Suspect]
     Active Substance: FENFLURAMINE
     Dosage: 4 MILLILITER, 2X/DAY (BID)
  4. FENFLURAMINE [Suspect]
     Active Substance: FENFLURAMINE
     Dosage: 8.8 MILLIGRAM PER KILOGRAM PER DAY 16.16 MILLIGRAM PER DAY

REACTIONS (4)
  - Limb operation [Recovered/Resolved]
  - Mitral valve incompetence [Unknown]
  - Lower limb fracture [Recovered/Resolved]
  - Gait disturbance [Not Recovered/Not Resolved]
